FAERS Safety Report 8321410 (Version 5)
Quarter: 2013Q1

REPORT INFORMATION
  Report Type: Spontaneous
  Country: US (occurrence: US)
  Receive Date: 20120104
  Receipt Date: 20130325
  Transmission Date: 20140127
  Serious: Yes (Hospitalization, Other)
  Sender: FDA-Public Use
  Company Number: US-GLAXOSMITHKLINE-A0959692A

PATIENT
  Age: 78 Year
  Sex: Male
  Weight: 96.4 kg

DRUGS (5)
  1. AVANDIA [Suspect]
     Indication: DIABETES MELLITUS
     Dosage: 8MG PER DAY
     Route: 048
     Dates: start: 200601, end: 200911
  2. ZOCOR [Concomitant]
  3. METFORMIN [Concomitant]
  4. HYTRIN [Concomitant]
  5. METOPROLOL [Concomitant]

REACTIONS (3)
  - Angina unstable [Not Recovered/Not Resolved]
  - Coronary artery disease [Unknown]
  - Cardiac failure congestive [Unknown]
